FAERS Safety Report 17650781 (Version 5)
Quarter: 2020Q2

REPORT INFORMATION
  Report Type: Spontaneous
  Country: US (occurrence: US)
  Receive Date: 20200408
  Receipt Date: 20200519
  Transmission Date: 20200713
  Serious: Yes (Hospitalization)
  Sender: FDA-Public Use
  Company Number: US-LEXICON PHARMACEUTICALS, INC-20-1606-00261

PATIENT
  Age: 62 Year
  Sex: Female

DRUGS (3)
  1. XERMELO [Suspect]
     Active Substance: TELOTRISTAT ETHYL
     Indication: CARCINOID SYNDROME
     Dates: start: 20200313
  2. VITAMIN B [Concomitant]
     Active Substance: VITAMIN B
  3. SANDOSTATIN [Concomitant]
     Active Substance: OCTREOTIDE ACETATE

REACTIONS (8)
  - Muscle spasms [Unknown]
  - Product dose omission [Unknown]
  - Urinary tract infection [Unknown]
  - Dementia [Unknown]
  - Stomatitis [Not Recovered/Not Resolved]
  - Laboratory test abnormal [Unknown]
  - Nausea [Unknown]
  - Skin burning sensation [Unknown]
